FAERS Safety Report 25079384 (Version 1)
Quarter: 2025Q1

REPORT INFORMATION
  Report Type: Spontaneous
  Country: FR (occurrence: FR)
  Receive Date: 20250314
  Receipt Date: 20250314
  Transmission Date: 20250408
  Serious: Yes (Hospitalization, Other)
  Sender: BLUEPRINT MEDICINES
  Company Number: FR-Blueprint Medicines Corporation-2025-AER-00461

PATIENT
  Age: 78 Year

DRUGS (1)
  1. AVAPRITINIB [Suspect]
     Active Substance: AVAPRITINIB
     Indication: Gastrointestinal stromal tumour
     Route: 065
     Dates: start: 20250301

REACTIONS (3)
  - Acute respiratory distress syndrome [Unknown]
  - Abdominal mass [Unknown]
  - Wrong technique in product usage process [Unknown]
